FAERS Safety Report 8716247 (Version 3)
Quarter: 2013Q4

REPORT INFORMATION
  Report Type: Spontaneous
  Country: IT (occurrence: IT)
  Receive Date: 20120810
  Receipt Date: 20131106
  Transmission Date: 20140711
  Serious: Yes (Life-Threatening)
  Sender: FDA-Public Use
  Company Number: IT-009507513-1208ITA001364

PATIENT
  Age: 80 Year
  Sex: Female

DRUGS (11)
  1. NEO-LOTAN 50 MG COMPRESSE RIVESTITE CON FILM [Suspect]
     Dosage: 50 MG, QD
     Route: 048
     Dates: start: 20111101, end: 20120724
  2. KANRENOL [Suspect]
     Indication: CARDIAC FAILURE
     Dosage: 25 MG, QD
     Route: 048
     Dates: start: 20111101, end: 20120724
  3. OMEPRAZOLE [Concomitant]
     Route: 048
  4. INSULIN [Concomitant]
     Route: 058
  5. LASIX (FUROSEMIDE) [Concomitant]
     Dosage: 125 MG, QD
     Route: 048
  6. DILATREND [Concomitant]
     Dosage: 6.25 MG, QD
     Route: 048
  7. EUTIROX [Concomitant]
     Route: 048
  8. ENTACT [Concomitant]
     Route: 048
  9. CARDIOASPIRIN [Concomitant]
     Dosage: 100 MG, QD
     Route: 048
  10. ALGIX 30MG COMPRESSE RIVESTITE CON FILM [Concomitant]
     Route: 048
  11. TRITTICO [Concomitant]

REACTIONS (1)
  - Nodal arrhythmia [Recovering/Resolving]
